FAERS Safety Report 5186436-2 (Version None)
Quarter: 2006Q4

REPORT INFORMATION
  Report Type: 
  Country: None (occurrence: None)
  Receive Date: 20061220
  Receipt Date: 20000821
  Transmission Date: 20070319
  Serious: Yes (Hospitalization)
  Sender: FDA-Public Use
  Company Number: FR-ELI_LILLY_AND_COMPANY-EWC000807677

PATIENT
  Age: 1 Day
  Weight: 2.3 kg

DRUGS (3)
  1. PROZAC [Suspect]
     Dosage: UNK, UNKNOWN
     Route: 064
     Dates: start: 19980325, end: 19980407
  2. CLARITIN [Concomitant]
     Dosage: UNK, UNKNOWN
     Route: 064
  3. SERESTA [Concomitant]
     Dosage: UNK, UNKNOWN
     Route: 064

REACTIONS (7)
  - AGITATION NEONATAL [None]
  - APGAR SCORE LOW [None]
  - DRUG EXPOSURE DURING PREGNANCY [None]
  - DRUG WITHDRAWAL SYNDROME NEONATAL [None]
  - FOETAL GROWTH RETARDATION [None]
  - INFANTILE APNOEIC ATTACK [None]
  - PREMATURE BABY [None]
